FAERS Safety Report 22215075 (Version 1)
Quarter: 2023Q2

REPORT INFORMATION
  Report Type: Spontaneous
  Country: US (occurrence: US)
  Receive Date: 20230415
  Receipt Date: 20230415
  Transmission Date: 20230721
  Serious: Yes (Other)
  Sender: FDA-Public Use
  Company Number: US-RADIUS HEALTH, INC.-2023US001672

PATIENT
  Age: 60 Year
  Sex: Female

DRUGS (2)
  1. TYMLOS [Suspect]
     Active Substance: ABALOPARATIDE
     Indication: Spinal fracture
     Dosage: 80 MICROGRAM, QD
     Route: 058
     Dates: start: 20221129, end: 20221201
  2. ASPIRIN [Concomitant]
     Active Substance: ASPIRIN
     Indication: Product used for unknown indication

REACTIONS (10)
  - Blood parathyroid hormone increased [Recovered/Resolved]
  - Hypertension [Recovered/Resolved]
  - Feeling abnormal [Recovered/Resolved]
  - Pain in jaw [Recovered/Resolved]
  - Gait inability [Recovered/Resolved]
  - Aphasia [Recovered/Resolved]
  - Troponin abnormal [Recovered/Resolved]
  - Blood calcium decreased [Recovered/Resolved]
  - Laboratory test abnormal [Recovered/Resolved]
  - Heart rate increased [Recovered/Resolved]

NARRATIVE: CASE EVENT DATE: 20221201
